FAERS Safety Report 4558338-3 (Version None)
Quarter: 2005Q1

REPORT INFORMATION
  Report Type: 
  Country: None (occurrence: None)
  Receive Date: 20050121
  Receipt Date: 20040423
  Transmission Date: 20050727
  Serious: No
  Sender: FDA-Public Use
  Company Number: US-BRISTOL-MYERS SQUIBB COMPANY-12569711

PATIENT
  Age: 7 Year
  Sex: Male
  Weight: 23 kg

DRUGS (2)
  1. CEFZIL [Suspect]
     Indication: PHARYNGITIS STREPTOCOCCAL
     Dosage: DOSE-250MG/5ML. NDC#0087-7719-64
     Route: 048
     Dates: start: 20040422, end: 20040422
  2. PATANOL [Concomitant]

REACTIONS (1)
  - PSYCHOMOTOR HYPERACTIVITY [None]
